FAERS Safety Report 5552730-6 (Version None)
Quarter: 2007Q4

REPORT INFORMATION
  Report Type: 
  Country: None (occurrence: None)
  Receive Date: 20071210
  Receipt Date: 20071121
  Transmission Date: 20080405
  Serious: Yes (Death, Hospitalization)
  Sender: FDA-Public Use
  Company Number: 6039105

PATIENT
  Age: 84 Year
  Sex: Female

DRUGS (6)
  1. BISOPROLOL FUMARATE [Suspect]
     Indication: CARDIAC FAILURE
     Route: 048
  2. LANTUS [Suspect]
     Indication: TYPE 2 DIABETES MELLITUS
     Dosage: 8 IU (8 IU, 1 D)
     Route: 058
     Dates: start: 20060203, end: 20060204
  3. AMLODIPINE BESYLATE [Concomitant]
  4. IKOREL (NICORANDIL) [Concomitant]
  5. ASPIRIN [Concomitant]
  6. PLAVIX [Concomitant]

REACTIONS (13)
  - AGITATION [None]
  - ARTERIOSCLEROSIS [None]
  - CEREBROVASCULAR ACCIDENT [None]
  - COMA [None]
  - DIABETIC NEPHROPATHY [None]
  - DRUG INEFFECTIVE [None]
  - GENERALISED OEDEMA [None]
  - HYPOGLYCAEMIA [None]
  - HYPOTHERMIA [None]
  - MIOSIS [None]
  - OVERDOSE [None]
  - PULMONARY OEDEMA [None]
  - RENAL FAILURE CHRONIC [None]
